FAERS Safety Report 14161759 (Version 3)
Quarter: 2018Q1

REPORT INFORMATION
  Report Type: Report from Study
  Country: US (occurrence: US)
  Receive Date: 20171106
  Receipt Date: 20180307
  Transmission Date: 20180508
  Serious: No
  Sender: FDA-Public Use
  Company Number: PHEH2017US035954

PATIENT
  Age: 56 Year
  Sex: Female
  Weight: 53.97 kg

DRUGS (1)
  1. GILENYA [Suspect]
     Active Substance: FINGOLIMOD HYDROCHLORIDE
     Indication: MULTIPLE SCLEROSIS
     Dosage: 0.5 MG, QD
     Route: 048
     Dates: start: 20170821

REACTIONS (10)
  - Diarrhoea [Unknown]
  - Dysarthria [Unknown]
  - Sleep terror [Unknown]
  - Insomnia [Unknown]
  - Decreased appetite [Unknown]
  - Abdominal discomfort [Unknown]
  - Pruritus generalised [Unknown]
  - Muscle spasms [Unknown]
  - Cognitive linguistic deficit [Unknown]
  - Depressed mood [Unknown]

NARRATIVE: CASE EVENT DATE: 20171101
